FAERS Safety Report 8249249-0 (Version None)
Quarter: 2012Q2

REPORT INFORMATION
  Report Type: 
  Country: None (occurrence: None)
  Receive Date: 20120402
  Receipt Date: 20120323
  Transmission Date: 20120825
  Serious: Yes (Hospitalization)
  Sender: FDA-Public Use
  Company Number: US-BAYER-2012-019489

PATIENT
  Age: 50 Year
  Sex: Female

DRUGS (10)
  1. KCHLOR [Concomitant]
     Dosage: 10 MG, DAILY
     Route: 048
  2. LISINOPRIL AND HYDROCHLOROTHIAZIDE [Concomitant]
     Dosage: 20/12.5 DAILY
     Route: 048
  3. CIPROFLOXACIN [Concomitant]
     Dosage: 500 MG, BID
  4. METRONIDAZOLE [Concomitant]
     Dosage: 500 MG, TID
     Route: 048
  5. INFLUENZA VACCINE [Concomitant]
     Dosage: UNK
     Dates: start: 20091001
  6. YAZ [Suspect]
  7. FUROSEMIDE [Concomitant]
     Dosage: 40 MG, DAILY
     Route: 048
  8. TRAMADOL HCL [Concomitant]
     Indication: PAIN
     Dosage: 50 MG, QID
     Route: 048
  9. FERROUS SULFATE TAB [Concomitant]
     Dosage: 325 MG, TID
     Route: 048
  10. NAPROXEN [Concomitant]
     Dosage: UNK UNK, PRN

REACTIONS (4)
  - CHOLECYSTECTOMY [None]
  - CHOLECYSTITIS CHRONIC [None]
  - DEEP VEIN THROMBOSIS [None]
  - PAIN [None]
